FAERS Safety Report 7931419-X (Version None)
Quarter: 2011Q4

REPORT INFORMATION
  Report Type: 
  Country: None (occurrence: None)
  Receive Date: 20111121
  Receipt Date: 20111114
  Transmission Date: 20120403
  Serious: Yes (Hospitalization, Other)
  Sender: FDA-Public Use
  Company Number: US-BAYER-200940969NA

PATIENT
  Age: 45 Year
  Sex: Male
  Weight: 98 kg

DRUGS (37)
  1. DEMEROL [Concomitant]
     Dosage: DAILY DOSE 50 MG
     Route: 030
     Dates: start: 19970128, end: 19970201
  2. LOPRESSOR [Concomitant]
     Dosage: 25-50 MG 2X DAILY
     Route: 048
     Dates: start: 19970128, end: 19970222
  3. LORTAB [Concomitant]
     Indication: PAIN
     Dosage: DAILY DOSE 7.5 MG
     Route: 048
     Dates: start: 19970212
  4. MORPHINE [Concomitant]
     Indication: AGITATION
  5. METOCLOPRAMIDE [Concomitant]
     Dosage: 10 MG, QID
     Route: 048
     Dates: start: 19970127, end: 19970130
  6. INDOCIN [Concomitant]
     Dosage: 25 MG, TID
     Route: 048
     Dates: start: 19970206, end: 19970213
  7. BENADRYL [Concomitant]
     Dosage: 50 MG, UNK
     Route: 042
     Dates: start: 19970126, end: 19970126
  8. HEPARIN [Concomitant]
     Indication: PNEUMONIA
  9. LIDOCAINE [Concomitant]
     Indication: VENTRICULAR FIBRILLATION
     Dosage: TITRATED , 2 G/MIN
     Route: 042
     Dates: start: 19970126, end: 19970127
  10. OMNIPAQUE 140 [Concomitant]
     Dosage: DAILY DOSE 100 ML
     Dates: start: 19970215, end: 19970215
  11. TISSUE PLASMINOGEN ACTIVATOR [Concomitant]
     Dosage: UNK
     Route: 042
     Dates: start: 19970126, end: 19970126
  12. DIGOXIN [Concomitant]
     Dosage: 0.25-0.5 MG
     Route: 042
     Dates: start: 19970127, end: 19970201
  13. ACETAMINOPHEN [Concomitant]
     Indication: PYREXIA
     Dosage: 650 MG, PRN, ORAL OR SUPPOSITORY
     Dates: start: 19970127, end: 19970222
  14. MORPHINE [Concomitant]
     Indication: PAIN
     Dosage: 2-4 MG AS NEEDED
     Route: 042
     Dates: start: 19970127, end: 19970222
  15. ACETYLSALICYLIC ACID SRT [Concomitant]
     Dosage: DAILY DOSE 325 MG
     Route: 048
     Dates: start: 19970127, end: 19970212
  16. RESTORIL [Concomitant]
     Indication: SLEEP DISORDER THERAPY
     Dosage: 15 MG, PRN
     Route: 048
     Dates: start: 19970201, end: 19970222
  17. OMNIPAQUE 140 [Concomitant]
     Dosage: DAILY DOSE 100 ML
     Dates: start: 19970126, end: 19970126
  18. DIGOXIN [Concomitant]
     Dosage: 0.25-0.5 MG
     Route: 048
     Dates: start: 19970127, end: 19970201
  19. FEOSOL [Concomitant]
     Dosage: 1 DF, TID
     Dates: start: 19970128, end: 19970222
  20. ANCEF [Concomitant]
     Dosage: 1 G, UNK
     Route: 042
     Dates: start: 19970126, end: 19970126
  21. ANCEF [Concomitant]
     Dosage: 1 G Q 8 HR
     Route: 042
     Dates: start: 19970127, end: 19970127
  22. TYLOX [Concomitant]
     Indication: PAIN
     Dosage: 1 DF, PRN
     Route: 048
  23. AXID [Concomitant]
     Dosage: 20 MG EVERY 12 HOURS
     Route: 048
     Dates: start: 19970127, end: 19970130
  24. TRASYLOL [Suspect]
     Indication: CORONARY ARTERY BYPASS
     Dosage: UNK
     Dates: start: 19970126
  25. HEPARIN [Concomitant]
     Indication: PULMONARY EMBOLISM
     Dosage: UNK, TITRATED
     Route: 042
     Dates: start: 19970206, end: 19970216
  26. XANAX [Concomitant]
     Dosage: 0.25 MG, PRN
     Dates: start: 19970206, end: 19970222
  27. RED BLOOD CELLS [Concomitant]
     Dosage: DAILY DOSE 2 U
     Dates: start: 19970130, end: 19970130
  28. RED BLOOD CELLS [Concomitant]
     Dosage: DAILY DOSE 1 U
     Dates: start: 19970219, end: 19970220
  29. PHENERGAN [Concomitant]
     Dosage: 12.5-25 MG I.M. OR I.V.
     Dates: start: 19970128, end: 19970222
  30. FAMOTIDINE [Concomitant]
     Dosage: 20 MG EVERY 4 HOURS
     Route: 042
     Dates: start: 19970127
  31. NITROGLYCERIN [Concomitant]
     Dosage: UNK
     Route: 042
     Dates: start: 19970126, end: 19970127
  32. RED BLOOD CELLS [Concomitant]
     Dosage: DAILY DOSE 1 U
     Dates: start: 19970131, end: 19970131
  33. LASIX [Concomitant]
     Dosage: VARIED DOSES
     Route: 042
     Dates: start: 19970130, end: 19970222
  34. TORADOL [Concomitant]
     Dosage: 10-30 MG I.M. OR ORAL
     Dates: start: 19970130, end: 19970215
  35. PROPOXYPHENE HYDROCHLORIDE [Concomitant]
     Indication: PAIN
     Dosage: 1-2 TABLETS, PRN
     Route: 048
     Dates: start: 19970128, end: 19970222
  36. DEXAMETHASONE [Concomitant]
     Dosage: 2-6 MG EVERY 4 HOURS
     Route: 042
     Dates: start: 19970127, end: 19970127
  37. CEFZIL [Concomitant]
     Dosage: 500 MG, Q12HR
     Route: 048
     Dates: start: 19970213, end: 19970222

REACTIONS (12)
  - UNEVALUABLE EVENT [None]
  - PAIN [None]
  - RENAL FAILURE [None]
  - ANXIETY [None]
  - MULTI-ORGAN FAILURE [None]
  - ANHEDONIA [None]
  - RENAL INFARCT [None]
  - DEPRESSION [None]
  - FEAR [None]
  - DISABILITY [None]
  - RENAL INJURY [None]
  - INJURY [None]
